FAERS Safety Report 8074872-6 (Version None)
Quarter: 2012Q1

REPORT INFORMATION
  Report Type: 
  Country: None (occurrence: None)
  Receive Date: 20120126
  Receipt Date: 20120119
  Transmission Date: 20120608
  Serious: Yes (Other)
  Sender: FDA-Public Use
  Company Number: US-ASTRAZENECA-2011SE71050

PATIENT
  Age: 55 Year
  Sex: Female

DRUGS (6)
  1. SYNTHROID [Concomitant]
  2. CALCIUM [Concomitant]
  3. NEXIUM [Suspect]
     Route: 048
  4. LISINOPRIL [Suspect]
     Route: 048
  5. ZYRTEC [Concomitant]
  6. VITAMIN D [Concomitant]

REACTIONS (4)
  - NEOPLASM MALIGNANT [None]
  - ASTHENIA [None]
  - THYROID CANCER [None]
  - MALAISE [None]
